FAERS Safety Report 9917865 (Version 3)
Quarter: 2014Q1

REPORT INFORMATION
  Report Type: Report from Study
  Country: US (occurrence: US)
  Receive Date: 20140221
  Receipt Date: 20140306
  Transmission Date: 20141002
  Serious: Yes (Hospitalization, Other)
  Sender: FDA-Public Use
  Company Number: US-ABBVIE-13P-163-1155207-00

PATIENT
  Age: 56 Year
  Sex: Male
  Weight: 68.1 kg

DRUGS (12)
  1. HUMIRA [Suspect]
     Indication: APLASIA PURE RED CELL
     Route: 058
     Dates: start: 201302, end: 201302
  2. HUMIRA [Suspect]
     Indication: CROHN^S DISEASE
     Route: 058
     Dates: start: 201302, end: 201302
  3. HUMIRA [Suspect]
     Route: 058
     Dates: end: 201307
  4. HUMIRA [Suspect]
     Dates: start: 201309
  5. ALIGN [Concomitant]
     Indication: GASTROINTESTINAL DISORDER
  6. CHOLESTYRAMINE [Concomitant]
     Indication: DIARRHOEA
  7. DICYCLOMINE [Concomitant]
     Indication: ABDOMINAL PAIN
  8. FOLIC ACID [Concomitant]
     Indication: VITAMIN SUPPLEMENTATION
  9. FUROSEMIDE [Concomitant]
     Indication: PRODUCT USED FOR UNKNOWN INDICATION
  10. GAVISCON [Concomitant]
     Indication: PRODUCT USED FOR UNKNOWN INDICATION
  11. HEPSERA [Concomitant]
     Indication: HEPATITIS B
  12. NADOLOL [Concomitant]
     Indication: PRODUCT USED FOR UNKNOWN INDICATION

REACTIONS (3)
  - Crohn^s disease [Recovered/Resolved]
  - Cholelithiasis [Recovered/Resolved]
  - Abdominal pain [Recovered/Resolved]
